FAERS Safety Report 8926644 (Version 3)
Quarter: 2012Q4

REPORT INFORMATION
  Report Type: Report from Study
  Country: JP (occurrence: JP)
  Receive Date: 20121127
  Receipt Date: 20121206
  Transmission Date: 20130627
  Serious: Yes (Hospitalization)
  Sender: FDA-Public Use
  Company Number: JP-BAYER-2012-117644

PATIENT
  Age: 81 Year
  Sex: Male
  Weight: 57 kg

DRUGS (9)
  1. LASER TREATMENT [Suspect]
     Indication: DIABETIC MACULAR OEDEMA
     Dosage: total of 9 doses of masked VEGF Trap-Eye 2mg vs laser
     Route: 031
     Dates: start: 20120313
  2. BLOPRESS [Suspect]
     Indication: HYPERTENSION
     Dosage: 12 mg, QD
     Route: 048
     Dates: start: 20071004
  3. ACTOS [Suspect]
     Indication: DIABETES MELLITUS
     Dosage: 15 mg, QD
     Route: 048
     Dates: start: 20121012
  4. BAYASPIRIN [Suspect]
     Indication: CEREBROVASCULAR ACCIDENT PROPHYLAXIS
     Dosage: 100 mg, QD
     Route: 048
     Dates: start: 20040214
  5. NORVASC [Suspect]
     Indication: HYPERTENSION
     Dosage: 5 mg, QD
     Route: 048
     Dates: start: 20091015
  6. EUGLUCON [Suspect]
     Indication: DIABETES MELLITUS
     Dosage: 2.5 mg, BID
     Route: 048
     Dates: start: 20030826
  7. VILDAGLIPTIN [Suspect]
     Indication: DIABETES MELLITUS
     Dosage: 50 mg, BID
     Route: 048
     Dates: start: 20120209
  8. MOHRUS [Concomitant]
     Indication: WRIST PAIN
     Dosage: Daily dose 20 mg
     Route: 062
     Dates: start: 20121023
  9. BRONUCK [Concomitant]
     Indication: DIABETIC MACULAR OEDEMA
     Dosage: UNK UNK, BID
     Route: 047
     Dates: start: 20100513

REACTIONS (2)
  - Enterocolitis [Recovered/Resolved]
  - Caecitis [Recovering/Resolving]
